FAERS Safety Report 9854035 (Version 2)
Quarter: 2014Q3

REPORT INFORMATION
  Report Type: Spontaneous
  Country: US (occurrence: US)
  Receive Date: 20140129
  Receipt Date: 20140826
  Transmission Date: 20150326
  Serious: Yes (Hospitalization, Other)
  Sender: FDA-Public Use
  Company Number: US-009507513-1401USA013601

PATIENT
  Sex: Female
  Weight: 48.53 kg

DRUGS (1)
  1. NUVARING [Suspect]
     Active Substance: ETHINYL ESTRADIOL\ETONOGESTREL
     Indication: CONTRACEPTION
     Dosage: 0.12 MG-0.015 MG/24 HRS/ INSERT ONE RING EACH MONTH
     Route: 067
     Dates: start: 20121001

REACTIONS (8)
  - Venous stent insertion [Unknown]
  - Thrombolysis [Unknown]
  - Deep vein thrombosis [Unknown]
  - Vena cava filter insertion [Unknown]
  - Vena cava filter removal [Unknown]
  - Anticoagulation drug level below therapeutic [Unknown]
  - Treatment noncompliance [Unknown]
  - Deep vein thrombosis [Unknown]

NARRATIVE: CASE EVENT DATE: 20121103
